FAERS Safety Report 5534046-7 (Version None)
Quarter: 2007Q4

REPORT INFORMATION
  Report Type: 
  Country: None (occurrence: None)
  Receive Date: 20071129
  Receipt Date: 20071129
  Transmission Date: 20080405
  Serious: Yes (Hospitalization)
  Sender: FDA-Public Use
  Company Number: None

PATIENT
  Age: 46 Year
  Sex: Female
  Weight: 61.2356 kg

DRUGS (1)
  1. CYCLOSPORINE [Suspect]
     Dates: start: 20061210, end: 20070208

REACTIONS (1)
  - RENAL FAILURE CHRONIC [None]
